FAERS Safety Report 9368424 (Version 1)
Quarter: 2013Q2

REPORT INFORMATION
  Report Type: Spontaneous
  Country: US (occurrence: US)
  Receive Date: 20130625
  Receipt Date: 20130625
  Transmission Date: 20140414
  Serious: No
  Sender: FDA-Public Use
  Company Number: US-ASTELLAS-2012US003195

PATIENT
  Sex: Female
  Weight: 66 kg

DRUGS (3)
  1. VESICARE [Suspect]
     Indication: HYPERTONIC BLADDER
     Dosage: 10 MG, UID/QD
     Route: 048
  2. CHOLESTYRAMINE [Concomitant]
     Indication: DIARRHOEA
     Dosage: 1 PACKET ONCE DAILY
     Route: 048
  3. COREG [Concomitant]
     Indication: PRODUCT USED FOR UNKNOWN INDICATION
     Dosage: 25 MG, UNKNOWN/D
     Route: 048

REACTIONS (1)
  - Hallucination, auditory [Not Recovered/Not Resolved]
